FAERS Safety Report 4878410-8 (Version None)
Quarter: 2005Q4

REPORT INFORMATION
  Report Type: 
  Country: None (occurrence: None)
  Receive Date: 20051212
  Receipt Date: 20050711
  Transmission Date: 20060501
  Serious: Yes (Other)
  Sender: FDA-Public Use
  Company Number: SUSI-2005-00543

PATIENT
  Age: 18 Year
  Sex: Female
  Weight: 54.4 kg

DRUGS (3)
  1. ADDERALL XR(DEXTROAMPHETAMINE SULFATE, DEXTROAMPHETAMINE, SACCHARATE, [Suspect]
     Indication: ATTENTION DEFICIT/HYPERACTIVITY DISORDER
     Dosage: 20 TO 50MG 1X/DAY, ORAL; 10 MG 1X/DAY:QD, ORAL
     Route: 048
     Dates: start: 20000101, end: 20050610
  2. ADDERALL XR(DEXTROAMPHETAMINE SULFATE, DEXTROAMPHETAMINE, SACCHARATE, [Suspect]
     Indication: ATTENTION DEFICIT/HYPERACTIVITY DISORDER
     Dosage: 20 TO 50MG 1X/DAY, ORAL; 10 MG 1X/DAY:QD, ORAL
     Route: 048
     Dates: start: 20050710
  3. INHALER INHALER [Concomitant]

REACTIONS (5)
  - DELUSION [None]
  - DRUG THERAPY CHANGED [None]
  - INTENTIONAL DRUG MISUSE [None]
  - PARANOIA [None]
  - PSYCHOTIC DISORDER [None]
